FAERS Safety Report 7283326-6 (Version None)
Quarter: 2011Q1

REPORT INFORMATION
  Report Type: 
  Country: None (occurrence: None)
  Receive Date: 20110209
  Receipt Date: 20110207
  Transmission Date: 20110831
  Serious: No
  Sender: FDA-Public Use
  Company Number: US-TEVA-266208USA

PATIENT
  Sex: Male
  Weight: 88.53 kg

DRUGS (2)
  1. ALBUTEROL SULFATE AUTOHALER [Suspect]
     Route: 055
     Dates: start: 20101201, end: 20110107
  2. BETA BLOCKING AGENTS [Concomitant]

REACTIONS (1)
  - BLISTER [None]
